FAERS Safety Report 9720198 (Version 1)
Quarter: 2013Q4

REPORT INFORMATION
  Report Type: Spontaneous
  Country: US (occurrence: US)
  Receive Date: 20131129
  Receipt Date: 20131129
  Transmission Date: 20140711
  Serious: Yes (Hospitalization, Other)
  Sender: FDA-Public Use
  Company Number: US-PAR PHARMACEUTICAL, INC-2013SCPR007799

PATIENT
  Sex: 0

DRUGS (3)
  1. FENTANYL CITRATE [Suspect]
     Indication: PRODUCT USED FOR UNKNOWN INDICATION
     Dosage: 2 DF, UNKNOWN, ROUTE OF ADMINISTRATION WAS ORAL AND DERMAL
  2. ACETAMINOPHEN W/OXYCODONE [Suspect]
     Indication: PRODUCT USED FOR UNKNOWN INDICATION
     Dosage: UNK, UNKNOWN, ROUTE OF ADMINISTRATION WAS ORAL AND DERMAL
  3. ACETAMINOPHEN [Suspect]
     Indication: PRODUCT USED FOR UNKNOWN INDICATION
     Dosage: UNK, UNKNOWN, ROUTE OF ADMINISTRATION WAS ORAL AND DERMAL

REACTIONS (11)
  - Toxicity to various agents [Unknown]
  - Coma [Unknown]
  - Coagulopathy [Unknown]
  - Transaminases increased [Unknown]
  - Prothrombin time prolonged [Unknown]
  - Lethargy [Unknown]
  - Irritability [Unknown]
  - Confusional state [Unknown]
  - Respiratory depression [Unknown]
  - Agitation [Unknown]
  - Somnolence [Unknown]
